FAERS Safety Report 8581345-0 (Version None)
Quarter: 2012Q3

REPORT INFORMATION
  Report Type: 
  Country: None (occurrence: None)
  Receive Date: 20120809
  Receipt Date: 20120808
  Transmission Date: 20120928
  Serious: Yes (Other)
  Sender: FDA-Public Use
  Company Number: PHHY2011ZA66194

PATIENT
  Age: 74 Year
  Sex: Female
  Weight: 48 kg

DRUGS (5)
  1. GLEEVEC [Suspect]
     Indication: GASTROINTESTINAL STROMAL TUMOUR
     Dosage: 400 MG, UNK
     Route: 048
     Dates: start: 20041102
  2. GLEEVEC [Suspect]
     Dosage: 800 MG, DAILY
     Route: 048
     Dates: start: 20100420
  3. ACETAMINOPHEN [Concomitant]
     Indication: PAIN
  4. METOCLOPRAMIDE [Concomitant]
     Indication: NAUSEA
  5. TRAMADOL HCL [Concomitant]

REACTIONS (4)
  - NEOPLASM PROGRESSION [None]
  - NEOPLASM MALIGNANT [None]
  - GENERAL PHYSICAL HEALTH DETERIORATION [None]
  - ABDOMINAL MASS [None]
